FAERS Safety Report 13589185 (Version 1)
Quarter: 2017Q2

REPORT INFORMATION
  Report Type: Spontaneous
  Country: US (occurrence: US)
  Receive Date: 20170529
  Receipt Date: 20170529
  Transmission Date: 20170830
  Serious: Yes (Other)
  Sender: FDA-Public Use
  Company Number: US-STRIDES ARCOLAB LIMITED-2016SP010742

PATIENT

DRUGS (7)
  1. EFAVIRENZ W/LAMIVUDINE/ZIDOVUDINE [Suspect]
     Active Substance: EFAVIRENZ\LAMIVUDINE\ZIDOVUDINE
     Indication: HIV INFECTION
     Dosage: UNK
  2. TENOFOVIR [Suspect]
     Active Substance: TENOFOVIR
     Indication: HIV INFECTION
     Dosage: UNK
  3. LOPINAVIR W/RITONAVIR [Suspect]
     Active Substance: LOPINAVIR\RITONAVIR
     Indication: HIV INFECTION
     Dosage: UNK
  4. LAMIVUDINE W/NEVIRAPINE/ZIDOVUDINE [Suspect]
     Active Substance: LAMIVUDINE\NEVIRAPINE\ZIDOVUDINE
     Indication: HIV INFECTION
     Dosage: UNK
  5. NEVIRAPINE. [Suspect]
     Active Substance: NEVIRAPINE
     Indication: HIV INFECTION
     Dosage: UNK
  6. LAMIVUDINE W/NEVIRAPINE/STAVUDINE [Suspect]
     Active Substance: LAMIVUDINE\NEVIRAPINE\STAVUDINE
     Indication: HIV INFECTION
     Dosage: UNK
  7. EFAVIRENZ W/LAMIVUDINE/STAVUDINE [Suspect]
     Active Substance: EFAVIRENZ\LAMIVUDINE\STAVUDINE
     Indication: HIV INFECTION
     Dosage: UNK

REACTIONS (1)
  - Virologic failure [Unknown]
